FAERS Safety Report 8283479-7 (Version None)
Quarter: 2012Q2

REPORT INFORMATION
  Report Type: 
  Country: None (occurrence: None)
  Receive Date: 20120413
  Receipt Date: 20120402
  Transmission Date: 20120825
  Serious: Yes (Other)
  Sender: FDA-Public Use
  Company Number: PHHY2012SA028217

PATIENT
  Age: 8 Year
  Sex: Male

DRUGS (2)
  1. PREDNISOLONE [Suspect]
     Indication: GRAFT VERSUS HOST DISEASE
  2. CYCLOSPORINE [Suspect]
     Indication: GRAFT VERSUS HOST DISEASE

REACTIONS (5)
  - RESPIRATORY DISORDER [None]
  - KAPOSI'S SARCOMA [None]
  - HUMAN HERPESVIRUS 8 INFECTION [None]
  - GINGIVAL DISORDER [None]
  - SKIN DISORDER [None]
